FAERS Safety Report 24765339 (Version 1)
Quarter: 2024Q4

REPORT INFORMATION
  Report Type: Spontaneous
  Country: US (occurrence: None)
  Receive Date: 20241219
  Receipt Date: 20241219
  Transmission Date: 20250115
  Serious: No
  Sender: Public
  Company Number: None

PATIENT
  Age: 56 Year
  Sex: Male
  Weight: 95 kg

DRUGS (1)
  1. WARFARIN SODIUM [Suspect]
     Active Substance: WARFARIN SODIUM
     Dosage: FREQUENCY : DAILY;?
     Route: 048

REACTIONS (2)
  - Headache [None]
  - International normalised ratio increased [None]

NARRATIVE: CASE EVENT DATE: 20241130
